FAERS Safety Report 20015951 (Version 1)
Quarter: 2021Q4

REPORT INFORMATION
  Report Type: Spontaneous
  Country: US (occurrence: None)
  Receive Date: 20211102
  Receipt Date: 20211102
  Transmission Date: 20220303
  Serious: Yes (Death)
  Sender: FDA-Public Use
  Company Number: None

PATIENT
  Age: 56 Year
  Sex: Female
  Weight: 117.93 kg

DRUGS (7)
  1. TREMFYA [Suspect]
     Active Substance: GUSELKUMAB
     Indication: Psoriatic arthropathy
     Dosage: OTHER FREQUENCY : WEEK 0 AND WEEK 4;?
     Route: 058
     Dates: start: 202004
  2. TREMFYA [Suspect]
     Active Substance: GUSELKUMAB
     Indication: Psoriasis
  3. TREMFYA [Suspect]
     Active Substance: GUSELKUMAB
     Indication: Psoriatic arthropathy
  4. TREMFYA [Suspect]
     Active Substance: GUSELKUMAB
     Indication: Hepatic failure
  5. TREMFYA [Suspect]
     Active Substance: GUSELKUMAB
     Indication: Psoriasis
  6. TREMFYA [Suspect]
     Active Substance: GUSELKUMAB
     Indication: Psoriatic arthropathy
  7. TREMFYA [Suspect]
     Active Substance: GUSELKUMAB
     Indication: Hepatic failure

REACTIONS (1)
  - Death [None]
